FAERS Safety Report 8543488-7 (Version None)
Quarter: 2012Q3

REPORT INFORMATION
  Report Type: 
  Country: None (occurrence: None)
  Receive Date: 20120727
  Receipt Date: 20120724
  Transmission Date: 20120928
  Serious: Yes (Hospitalization)
  Sender: FDA-Public Use
  Company Number: PHHY2012JP061087

PATIENT
  Age: 88 Year
  Sex: Male

DRUGS (3)
  1. RIVASTIGMINE [Suspect]
     Dosage: 9 MG, QD
     Route: 062
     Dates: start: 20120501, end: 20120101
  2. RIVASTIGMINE [Suspect]
     Indication: DEMENTIA ALZHEIMER'S TYPE
     Dosage: 18 MG, DAILY
     Route: 062
     Dates: end: 20120501
  3. RIVASTIGMINE [Suspect]
     Dosage: 4.5 MG, QD
     Route: 062
     Dates: start: 20120101

REACTIONS (3)
  - DECREASED APPETITE [None]
  - PNEUMONIA [None]
  - OESOPHAGEAL CARCINOMA [None]
